FAERS Safety Report 8033693-0 (Version None)
Quarter: 2012Q1

REPORT INFORMATION
  Report Type: 
  Country: None (occurrence: None)
  Receive Date: 20120110
  Receipt Date: 20120104
  Transmission Date: 20120608
  Serious: Yes (Hospitalization)
  Sender: FDA-Public Use
  Company Number: US-GLAXOSMITHKLINE-A0915708A

PATIENT
  Age: 66 Year
  Sex: Male

DRUGS (1)
  1. AVANDIA [Suspect]
     Indication: DIABETES MELLITUS
     Dosage: 4MG TWICE PER DAY
     Route: 048
     Dates: start: 20040301, end: 20070801

REACTIONS (5)
  - TACHYCARDIA [None]
  - CHRONIC OBSTRUCTIVE PULMONARY DISEASE [None]
  - ANGINA UNSTABLE [None]
  - CORONARY ARTERY DISEASE [None]
  - ANGINA PECTORIS [None]
